FAERS Safety Report 18963679 (Version 1)
Quarter: 2021Q1

REPORT INFORMATION
  Report Type: Spontaneous
  Country: US (occurrence: US)
  Receive Date: 20210303
  Receipt Date: 20210303
  Transmission Date: 20210420
  Serious: Yes (Other)
  Sender: FDA-Public Use
  Company Number: US-AMGEN-USASP2021031222

PATIENT
  Age: 12 Year
  Sex: Male

DRUGS (3)
  1. FILGRASTIM [Suspect]
     Active Substance: FILGRASTIM
     Dosage: 3 MICROGRAM/KILOGRAM, BID
     Route: 058
     Dates: start: 19991018
  2. FILGRASTIM [Suspect]
     Active Substance: FILGRASTIM
     Dosage: 10 MICROGRAM/KILOGRAM, QD
     Route: 058
     Dates: start: 19990608
  3. FILGRASTIM [Suspect]
     Active Substance: FILGRASTIM
     Indication: INFANTILE GENETIC AGRANULOCYTOSIS
     Dosage: 5 MICROGRAM/KILOGRAM, BID
     Route: 058
     Dates: start: 19990317

REACTIONS (3)
  - Cellulitis [Recovering/Resolving]
  - Acute myeloid leukaemia [Unknown]
  - Ear infection [Recovering/Resolving]

NARRATIVE: CASE EVENT DATE: 19990608
